FAERS Safety Report 10952107 (Version 1)
Quarter: 2015Q1

REPORT INFORMATION
  Report Type: Spontaneous
  Country: US (occurrence: US)
  Receive Date: 20150325
  Receipt Date: 20150325
  Transmission Date: 20150721
  Serious: Yes (Death, Other)
  Sender: FDA-Public Use
  Company Number: US-CIPLA LTD.-2015US02246

PATIENT

DRUGS (9)
  1. CITALOPRAM [Suspect]
     Active Substance: CITALOPRAM HYDROBROMIDE
  2. ETHANOL [Suspect]
     Active Substance: ALCOHOL
  3. OPIOID [Suspect]
     Active Substance: UNSPECIFIED INGREDIENT
  4. BENZODIAZEPINE [Suspect]
     Active Substance: BENZODIAZEPINE
  5. AMPHETAMINE [Suspect]
     Active Substance: AMPHETAMINE
  6. CHLORAL HYDRATE [Suspect]
     Active Substance: CHLORAL HYDRATE
  7. AMITRIPTYLINE [Suspect]
     Active Substance: AMITRIPTYLINE
  8. DEXTROAMPHETAMINE [Suspect]
     Active Substance: DEXTROAMPHETAMINE
  9. CARISOPRODOL. [Suspect]
     Active Substance: CARISOPRODOL

REACTIONS (3)
  - Death [Fatal]
  - Cardiac arrest [Unknown]
  - Respiratory arrest [Unknown]
